FAERS Safety Report 19415641 (Version 1)
Quarter: 2021Q2

REPORT INFORMATION
  Report Type: Report from Study
  Country: None (occurrence: US)
  Receive Date: 20210615
  Receipt Date: 20210615
  Transmission Date: 20210717
  Serious: Yes (Other)
  Sender: FDA-Public Use
  Company Number: US-ABBVIE-21K-163-3946771-00

PATIENT
  Sex: Female

DRUGS (2)
  1. HUMIRA [Suspect]
     Active Substance: ADALIMUMAB
     Route: 058
     Dates: start: 20210602, end: 20210602
  2. HUMIRA [Suspect]
     Active Substance: ADALIMUMAB
     Indication: CROHN^S DISEASE
     Route: 058
     Dates: start: 202012, end: 20210506

REACTIONS (7)
  - Decreased appetite [Unknown]
  - Insomnia [Unknown]
  - Tendon rupture [Unknown]
  - Diarrhoea [Unknown]
  - Injection site bruising [Recovered/Resolved]
  - Constipation [Unknown]
  - Depressed mood [Unknown]
